FAERS Safety Report 6226867-2 (Version None)
Quarter: 2009Q2

REPORT INFORMATION
  Report Type: 
  Country: None (occurrence: None)
  Receive Date: 20090612
  Receipt Date: 20090519
  Transmission Date: 20091009
  Serious: No
  Sender: FDA-Public Use
  Company Number: US-ABBOTT-09P-163-0575091-00

PATIENT
  Sex: Male
  Weight: 72.64 kg

DRUGS (3)
  1. HUMIRA [Suspect]
     Indication: CROHN'S DISEASE
     Route: 058
     Dates: start: 20090318, end: 20090318
  2. HUMIRA [Suspect]
     Route: 058
     Dates: start: 20090401, end: 20090401
  3. HUMIRA [Suspect]
     Route: 058
     Dates: start: 20090415

REACTIONS (5)
  - DIZZINESS [None]
  - DRUG DOSE OMISSION [None]
  - FALL [None]
  - HYPOAESTHESIA [None]
  - MUSCLE STRAIN [None]
